FAERS Safety Report 16661710 (Version 1)
Quarter: 2019Q3

REPORT INFORMATION
  Report Type: Spontaneous
  Country: CZ (occurrence: CZ)
  Receive Date: 20190802
  Receipt Date: 20190802
  Transmission Date: 20191004
  Serious: Yes (Life-Threatening, Hospitalization, Other)
  Sender: FDA-Public Use
  Company Number: CZ-MYLANLABS-2019M1072055

PATIENT
  Sex: Female

DRUGS (8)
  1. XELODA [Concomitant]
     Active Substance: CAPECITABINE
     Indication: METASTASES TO LIVER
  2. 5-FLUOROURACIL                     /00098801/ [Concomitant]
     Active Substance: FLUOROURACIL
     Indication: RECTAL ADENOCARCINOMA
     Dosage: PART OF FOLFOX
     Route: 065
  3. XELODA [Concomitant]
     Active Substance: CAPECITABINE
     Indication: RECTAL ADENOCARCINOMA
     Dosage: PART OF XELOX CHEMOTHERAPY
     Route: 065
     Dates: start: 201705
  4. FOLINIC ACID [Concomitant]
     Active Substance: LEUCOVORIN
     Indication: RECTAL ADENOCARCINOMA
     Dosage: PART OF FOLFOX
     Route: 065
  5. OXALIPLATIN. [Suspect]
     Active Substance: OXALIPLATIN
     Indication: RECTAL ADENOCARCINOMA
     Dosage: PART OF XELOX CHEMOTHERAPY REGIMEN
     Route: 050
     Dates: start: 201705
  6. OXALIPLATIN. [Suspect]
     Active Substance: OXALIPLATIN
     Indication: METASTASES TO LIVER
  7. 5-FLUOROURACIL                     /00098801/ [Concomitant]
     Active Substance: FLUOROURACIL
     Indication: METASTASES TO LIVER
  8. FOLINIC ACID [Concomitant]
     Active Substance: LEUCOVORIN
     Indication: METASTASES TO LIVER

REACTIONS (3)
  - Type II hypersensitivity [Recovered/Resolved]
  - Acute kidney injury [Recovered/Resolved]
  - Evans syndrome [Recovered/Resolved]
